FAERS Safety Report 6962175-X (Version None)
Quarter: 2010Q3

REPORT INFORMATION
  Report Type: 
  Country: None (occurrence: None)
  Receive Date: 20100902
  Receipt Date: 20100825
  Transmission Date: 20110219
  Serious: Yes (Other)
  Sender: FDA-Public Use
  Company Number: CH-WYE-G06478010

PATIENT
  Age: 29 Year
  Sex: Female

DRUGS (5)
  1. EFFEXOR [Suspect]
     Indication: BIPOLAR DISORDER
  2. EFFEXOR [Suspect]
     Indication: OFF LABEL USE
  3. ATARAX [Suspect]
     Indication: BIPOLAR DISORDER
     Dosage: TREATMENT STARTED AT THE 5TH WEEK OF AMENORRHEA,DURING THE FIRST TRIMESTER OF PREGNANCY
     Dates: start: 20090101, end: 20090101
  4. LEVOTHYROXINE SODIUM [Concomitant]
     Indication: HYPOTHYROIDISM
  5. TERALITHE [Suspect]
     Indication: BIPOLAR DISORDER
     Dosage: DOSE AND FREQUENCY UNKNOWN,STOPPED AT THE 5TH WEEK OF AMENORRHEA AND RESTARTED AT THE 17TH WEEK

REACTIONS (4)
  - BIPOLAR DISORDER [None]
  - CONDITION AGGRAVATED [None]
  - DRUG EXPOSURE DURING PREGNANCY [None]
  - POLYHYDRAMNIOS [None]
